FAERS Safety Report 4392950-X (Version None)
Quarter: 2004Q3

REPORT INFORMATION
  Report Type: 
  Country: None (occurrence: None)
  Receive Date: 20040702
  Receipt Date: 20040618
  Transmission Date: 20050211
  Serious: Yes (Other)
  Sender: FDA-Public Use
  Company Number: 200410486BCA

PATIENT
  Age: 16 Year
  Sex: Female

DRUGS (2)
  1. ASPIRIN WITH STOMACH GUARD [Suspect]
     Dosage: 7 U, TOTAL DAILY
     Dates: start: 20030917
  2. WARFARIN SODIUM [Suspect]
     Dosage: 245 MG, TOTAL DAILY

REACTIONS (5)
  - DIARRHOEA [None]
  - INTENTIONAL OVERDOSE [None]
  - PROTHROMBIN LEVEL DECREASED [None]
  - SINUS TACHYCARDIA [None]
  - TINNITUS [None]
